FAERS Safety Report 6333058-3 (Version None)
Quarter: 2009Q3

REPORT INFORMATION
  Report Type: 
  Country: None (occurrence: None)
  Receive Date: 20090828
  Receipt Date: 20090825
  Transmission Date: 20100115
  Serious: Yes (Death)
  Sender: FDA-Public Use
  Company Number: DE-SANOFI-SYNTHELABO-F04200900079

PATIENT

DRUGS (4)
  1. CETUXIMAB [Suspect]
     Indication: METASTATIC GASTRIC CANCER
     Dosage: 400 MG/M2 OR 250 MG/M2
     Route: 041
  2. FOLINIC ACID [Suspect]
     Indication: METASTATIC GASTRIC CANCER
     Route: 041
  3. FLUOROURACIL [Suspect]
     Indication: METASTATIC GASTRIC CANCER
     Route: 041
  4. ELOXATIN [Suspect]
     Indication: METASTATIC GASTRIC CANCER
     Route: 041

REACTIONS (1)
  - SEPTIC SHOCK [None]
